FAERS Safety Report 4645037-2 (Version None)
Quarter: 2005Q2

REPORT INFORMATION
  Report Type: 
  Country: None (occurrence: None)
  Receive Date: 20050426
  Receipt Date: 20050318
  Transmission Date: 20051028
  Serious: Yes (Other)
  Sender: FDA-Public Use
  Company Number: JP-ROCHE-399687

PATIENT
  Age: 29 Year
  Sex: Male

DRUGS (11)
  1. TAMIFLU [Suspect]
     Route: 048
     Dates: start: 20050304, end: 20050308
  2. FLOMOX [Suspect]
     Indication: PHARYNGITIS
     Route: 048
     Dates: start: 20050302, end: 20050304
  3. KAKKON-TO [Concomitant]
     Dosage: 28 FEB 2005 - 4 MAR 2005: 1 DOSE FORM 3 X DAY 4 MAR 2005 - 9 MAR 2005: 1 DOSE FORM 2 X DAY
     Route: 048
     Dates: start: 20050228, end: 20050309
  4. CALTAN [Concomitant]
     Route: 048
  5. TAKEPRON [Concomitant]
     Route: 048
  6. NU-LOTAN [Concomitant]
     Route: 048
  7. COVERSYL [Concomitant]
     Route: 048
  8. ADALAT [Concomitant]
     Route: 048
  9. EPOGIN [Concomitant]
     Dosage: DOSE: 1500 UT 23 FEB 2005 - 3000 UT 3/1 WEEK.
     Dates: start: 20050209
  10. ROCALTROL [Concomitant]
     Route: 048
     Dates: start: 20050221
  11. CRAVIT [Concomitant]
     Route: 048
     Dates: start: 20050304, end: 20050307

REACTIONS (4)
  - ANAEMIA [None]
  - ANOREXIA [None]
  - DEHYDRATION [None]
  - WHITE BLOOD CELL COUNT DECREASED [None]
